FAERS Safety Report 6048828-9 (Version None)
Quarter: 2009Q1

REPORT INFORMATION
  Report Type: 
  Country: None (occurrence: None)
  Receive Date: 20090123
  Receipt Date: 20090115
  Transmission Date: 20090719
  Serious: Yes (Hospitalization, Other)
  Sender: FDA-Public Use
  Company Number: JP-JNJFOC-20090105163

PATIENT
  Sex: Male

DRUGS (8)
  1. LEVAQUIN [Suspect]
     Indication: URINARY TRACT INFECTION
     Route: 048
  2. PROMAC [Concomitant]
     Route: 048
  3. MEROPEN [Concomitant]
     Indication: PNEUMONIA
     Route: 065
  4. TAKEPRON [Concomitant]
     Route: 048
  5. PLETAL [Concomitant]
     Route: 048
  6. PRANDOL [Concomitant]
     Route: 062
  7. ALBUMIN TANNATE [Concomitant]
     Route: 048
  8. ENTOMOL [Concomitant]
     Route: 065

REACTIONS (2)
  - PNEUMONIA [None]
  - TORSADE DE POINTES [None]
